FAERS Safety Report 9374722 (Version 2)
Quarter: 2013Q3

REPORT INFORMATION
  Report Type: Report from Study
  Country: GB (occurrence: GB)
  Receive Date: 20130628
  Receipt Date: 20130722
  Transmission Date: 20140515
  Serious: Yes (Hospitalization, Other)
  Sender: FDA-Public Use
  Company Number: GB-JNJFOC-20130615738

PATIENT
  Age: 56 Year
  Sex: Male
  Weight: 135 kg

DRUGS (6)
  1. USTEKINUMAB [Suspect]
     Indication: PSORIASIS
     Route: 058
     Dates: start: 20120418
  2. OLANZAPINE [Concomitant]
     Dates: start: 19970101
  3. SIMVASTATIN [Concomitant]
     Dates: start: 20100711
  4. VALPROIC ACID [Concomitant]
     Dates: start: 20101215
  5. METFORMIN [Concomitant]
     Dates: start: 20101215
  6. LOSARTAN [Concomitant]
     Dates: start: 20010122

REACTIONS (7)
  - Fall [Recovered/Resolved]
  - Tibia fracture [Recovered/Resolved]
  - Brain scan abnormal [Unknown]
  - Emphysema [Unknown]
  - Atelectasis [Unknown]
  - Sleep apnoea syndrome [Unknown]
  - Oxygen saturation decreased [Unknown]
